FAERS Safety Report 7270869-4 (Version None)
Quarter: 2011Q1

REPORT INFORMATION
  Report Type: 
  Country: None (occurrence: None)
  Receive Date: 20110202
  Receipt Date: 20110118
  Transmission Date: 20110831
  Serious: Yes (Hospitalization, Other)
  Sender: FDA-Public Use
  Company Number: PHHY2011US05426

PATIENT
  Age: 79 Year
  Sex: Male

DRUGS (4)
  1. CIPROFLOXACIN HCL [Interacting]
     Indication: DIVERTICULITIS
  2. GLIMEPIRIDE [Interacting]
     Dosage: 01 MG DAILY
  3. METRONIDAZOLE [Suspect]
     Indication: DIVERTICULITIS
     Dosage: 500 MG IV EVERY 8 HOURS
  4. INSULIN GLARGINE [Concomitant]

REACTIONS (7)
  - BLOOD UREA INCREASED [None]
  - BLOOD CREATININE INCREASED [None]
  - DRUG INTERACTION [None]
  - HYPOGLYCAEMIA [None]
  - HYPOTENSION [None]
  - BLOOD PRESSURE DIASTOLIC DECREASED [None]
  - LETHARGY [None]
